FAERS Safety Report 8904977 (Version 2)
Quarter: 2013Q2

REPORT INFORMATION
  Report Type: Spontaneous
  Country: US (occurrence: US)
  Receive Date: 20121113
  Receipt Date: 20130522
  Transmission Date: 20140414
  Serious: No
  Sender: FDA-Public Use
  Company Number: US-BIOGENIDEC-2012BI051276

PATIENT
  Sex: Female

DRUGS (3)
  1. TYSABRI [Suspect]
     Indication: MULTIPLE SCLEROSIS
     Route: 042
     Dates: start: 20090610
  2. AMBIEN [Concomitant]
  3. SEROQUEL [Concomitant]

REACTIONS (4)
  - Pain in extremity [Recovered/Resolved]
  - Multiple sclerosis relapse [Recovered/Resolved]
  - Multiple sclerosis [Unknown]
  - Fatigue [Recovered/Resolved]
